FAERS Safety Report 14940679 (Version 1)
Quarter: 2018Q2

REPORT INFORMATION
  Report Type: Spontaneous
  Country: CN (occurrence: CN)
  Receive Date: 20180525
  Receipt Date: 20180525
  Transmission Date: 20180711
  Serious: Yes (Death)
  Sender: FDA-Public Use
  Company Number: CN-IMPAX LABORATORIES, INC-2018-IPXL-01755

PATIENT
  Age: 14 Year
  Sex: Female

DRUGS (2)
  1. DIVALPROEX SODIUM ER [Suspect]
     Active Substance: DIVALPROEX SODIUM
     Indication: FRONTAL LOBE EPILEPSY
     Dosage: 500 MG, DAILY
     Route: 048
  2. DIVALPROEX SODIUM ER [Suspect]
     Active Substance: DIVALPROEX SODIUM
     Indication: GENERALISED TONIC-CLONIC SEIZURE

REACTIONS (1)
  - Sudden unexplained death in epilepsy [Fatal]
